FAERS Safety Report 14247604 (Version 1)
Quarter: 2017Q4

REPORT INFORMATION
  Report Type: Report from Study
  Country: CA (occurrence: CA)
  Receive Date: 20171204
  Receipt Date: 20171204
  Transmission Date: 20180321
  Serious: Yes (Other)
  Sender: FDA-Public Use
  Company Number: CA-JNJFOC-20171200679

PATIENT
  Sex: Male
  Weight: 68.1 kg

DRUGS (2)
  1. SALOFALK GR [Concomitant]
     Route: 050
  2. REMICADE [Suspect]
     Active Substance: INFLIXIMAB
     Indication: COLITIS ULCERATIVE
     Dosage: STRENGTH = 100 MG
     Route: 042
     Dates: start: 20150702

REACTIONS (1)
  - Skin cancer [Recovering/Resolving]
